FAERS Safety Report 5695450-X (Version None)
Quarter: 2008Q2

REPORT INFORMATION
  Report Type: 
  Country: None (occurrence: None)
  Receive Date: 20080403
  Receipt Date: 20080321
  Transmission Date: 20081010
  Serious: Yes (Hospitalization, Other)
  Sender: FDA-Public Use
  Company Number: 08-000142

PATIENT
  Age: 23 Year
  Sex: Female
  Weight: 74.8 kg

DRUGS (1)
  1. ESTROSTEP FE [Suspect]
     Indication: CONTRACEPTION
     Dosage: 20-30-35/1000 UG, QD, ORAL
     Route: 048
     Dates: start: 20020101, end: 20070625

REACTIONS (4)
  - BREAST PAIN [None]
  - DEEP VEIN THROMBOSIS [None]
  - FIBROCYSTIC BREAST DISEASE [None]
  - LYMPHADENOPATHY [None]
